FAERS Safety Report 17434823 (Version 1)
Quarter: 2020Q1

REPORT INFORMATION
  Report Type: Spontaneous
  Country: DE (occurrence: DE)
  Receive Date: 20200219
  Receipt Date: 20200219
  Transmission Date: 20200409
  Serious: Yes (Hospitalization)
  Sender: FDA-Public Use
  Company Number: NVSC2020DE041432

PATIENT
  Sex: Female

DRUGS (1)
  1. METFORMIN 500 - 1 A PHARMA [Suspect]
     Active Substance: METFORMIN HYDROCHLORIDE
     Indication: PRODUCT USED FOR UNKNOWN INDICATION
     Dosage: 500 OT, UNKNOWN
     Route: 065

REACTIONS (1)
  - Skin reaction [Unknown]
